FAERS Safety Report 7967628-3 (Version None)
Quarter: 2011Q4

REPORT INFORMATION
  Report Type: 
  Country: None (occurrence: None)
  Receive Date: 20111209
  Receipt Date: 20111202
  Transmission Date: 20120403
  Serious: Yes (Hospitalization, Other)
  Sender: FDA-Public Use
  Company Number: IN-PFIZER INC-2011294611

PATIENT
  Age: 3 Year
  Sex: Female
  Weight: 10.5 kg

DRUGS (6)
  1. PHENYTOIN SODIUM [Suspect]
     Indication: GRAND MAL CONVULSION
     Dosage: 5 MG/KG/ DAY, FOR 5 DAYS
     Route: 042
  2. PHENOBARBITAL TAB [Interacting]
     Dosage: (20 MG/5 ML), 6 ML, 12 HOURLY
     Route: 048
  3. PHENOBARBITAL TAB [Interacting]
     Indication: GRAND MAL CONVULSION
     Dosage: 5 MG/KG/DAY, GIVEN FOR 5 DAYS
     Route: 042
  4. CLOBAZAM [Interacting]
     Indication: GRAND MAL CONVULSION
     Dosage: 0.75 MG/KG/ DAY, GIVEN FOR 3 DAYS
  5. PHENYTOIN [Interacting]
     Indication: GRAND MAL CONVULSION
     Dosage: (30 MG/5 ML), 4 ML, 12 HOURLY
     Route: 048
  6. LORAZEPAM [Concomitant]
     Indication: CONVULSION
     Dosage: 0.04 MG/KG

REACTIONS (2)
  - CHOREA [None]
  - DRUG INTERACTION [None]
